FAERS Safety Report 8092685-6 (Version None)
Quarter: 2012Q1

REPORT INFORMATION
  Report Type: 
  Country: None (occurrence: None)
  Receive Date: 20120128
  Receipt Date: 20110804
  Transmission Date: 20120608
  Serious: No
  Sender: FDA-Public Use
  Company Number: US-ABBOTT-11P-163-0843833-00

PATIENT
  Sex: Female
  Weight: 77.18 kg

DRUGS (7)
  1. PRILOSEC [Concomitant]
     Indication: ILL-DEFINED DISORDER
  2. HUMIRA [Suspect]
     Indication: PSORIATIC ARTHROPATHY
  3. HUMIRA [Suspect]
     Indication: PSORIASIS
     Dates: start: 20110715
  4. BIRTH CONTROL PILLS [Concomitant]
     Indication: CONTRACEPTION
  5. CALCIUM [Concomitant]
     Indication: MINERAL SUPPLEMENTATION
  6. VITAMIN D [Concomitant]
     Indication: VITAMIN SUPPLEMENTATION
  7. MULTI-VITAMINS [Concomitant]
     Indication: VITAMIN SUPPLEMENTATION

REACTIONS (3)
  - FATIGUE [None]
  - INJECTION SITE PAIN [None]
  - DIARRHOEA [None]
